FAERS Safety Report 8611247-2 (Version None)
Quarter: 2012Q3

REPORT INFORMATION
  Report Type: 
  Country: None (occurrence: None)
  Receive Date: 20120806
  Receipt Date: 20120726
  Transmission Date: 20120928
  Serious: Yes (Life-Threatening, Other)
  Sender: FDA-Public Use
  Company Number: 2012032971

PATIENT
  Age: 15 Year
  Sex: Male

DRUGS (1)
  1. BERINERT [Suspect]
     Indication: HEREDITARY ANGIOEDEMA
     Dosage: SEE IMAGE
     Route: 042
     Dates: start: 20120723, end: 20120724

REACTIONS (5)
  - DRUG INEFFECTIVE [None]
  - DRUG ABUSE [None]
  - CONDITION AGGRAVATED [None]
  - HEREDITARY ANGIOEDEMA [None]
  - LARYNGEAL OEDEMA [None]
